FAERS Safety Report 8936105 (Version 1)
Quarter: 2012Q4

REPORT INFORMATION
  Report Type: 
  Country: US (occurrence: US)
  Receive Date: 20121130
  Receipt Date: 20121130
  Transmission Date: 20130627
  Serious: Yes (Other)
  Sender: FDA-Public Use
  Company Number: US-PFIZER INC-2012299654

PATIENT
  Age: 45 Year
  Sex: Female
  Weight: 69.39 kg

DRUGS (7)
  1. NEURONTIN [Suspect]
     Indication: SEIZURES
     Dosage: 1200mg in morning, 600mg in afternoon and 1800mg at night
     Dates: end: 201211
  2. BENTYL [Concomitant]
     Indication: GASTRIC DISORDER
     Dosage: 10 mg, 3x/day
  3. OXYBUTYNIN [Concomitant]
     Indication: BLADDER DISORDER
     Dosage: 5 mg, 3x/day
  4. BUSPAR [Concomitant]
     Indication: MENTAL DISORDER
     Dosage: 150 mg, 2x/day
  5. RISPERDAL [Concomitant]
     Indication: MENTAL DISORDER
     Dosage: 1 mg, daily
  6. ZOLOFT [Concomitant]
     Indication: MENTAL DISORDER
     Dosage: 50 mg, daily
  7. TRAZODONE [Concomitant]
     Indication: MENTAL DISORDER
     Dosage: 200 mg, daily

REACTIONS (1)
  - Convulsion [Unknown]
